FAERS Safety Report 8083206-2 (Version None)
Quarter: 2012Q1

REPORT INFORMATION
  Report Type: 
  Country: None (occurrence: None)
  Receive Date: 20120127
  Receipt Date: 20110127
  Transmission Date: 20120608
  Serious: No
  Sender: FDA-Public Use
  Company Number: US-ABBOTT-11P-163-0699885-00

PATIENT
  Age: 41 Year
  Sex: Female

DRUGS (5)
  1. HUMIRA [Suspect]
     Indication: PSORIATIC ARTHROPATHY
     Dates: start: 20101001
  2. ASCORBIC ACID [Concomitant]
     Indication: PRODUCT USED FOR UNKNOWN INDICATION
     Dosage: TAKES DAILY
  3. VITAMIN TAB [Concomitant]
     Indication: PRODUCT USED FOR UNKNOWN INDICATION
     Dosage: TAKES DAILY
  4. NEXIUM [Concomitant]
     Indication: DYSPEPSIA
     Dosage: AS NEEDED
  5. ACETAMINOPHEN [Concomitant]
     Indication: PAIN
     Dosage: AS NEEDED

REACTIONS (3)
  - ABDOMINAL DISTENSION [None]
  - WEIGHT INCREASED [None]
  - INJECTION SITE PARAESTHESIA [None]
